FAERS Safety Report 7454329-3 (Version None)
Quarter: 2011Q2

REPORT INFORMATION
  Report Type: 
  Country: None (occurrence: None)
  Receive Date: 20110503
  Receipt Date: 20110419
  Transmission Date: 20111010
  Serious: Yes (Other)
  Sender: FDA-Public Use
  Company Number: US-JNJFOC-20110409245

PATIENT
  Sex: Male
  Weight: 88.45 kg

DRUGS (6)
  1. VIOXX [Suspect]
     Indication: MUSCLE DISORDER
     Route: 065
  2. NEURONTIN [Suspect]
     Indication: MUSCLE DISORDER
     Route: 065
  3. PROPECIA [Concomitant]
     Indication: ALOPECIA
     Route: 048
  4. TOPAMAX [Suspect]
     Indication: PRODUCT USED FOR UNKNOWN INDICATION
     Route: 048
  5. HYDROCODONE BITARTRATE [Concomitant]
     Indication: BACK PAIN
     Dosage: AS NEEDED
     Route: 048
  6. PROTONIX [Concomitant]
     Indication: GASTROOESOPHAGEAL REFLUX DISEASE
     Route: 048

REACTIONS (29)
  - PARALYSIS [None]
  - CARDIAC DISORDER [None]
  - OROPHARYNGEAL PAIN [None]
  - HYPOAESTHESIA [None]
  - VISUAL IMPAIRMENT [None]
  - RESTLESSNESS [None]
  - ANXIETY [None]
  - THERAPY CESSATION [None]
  - MUSCLE DISORDER [None]
  - DYSGEUSIA [None]
  - AGITATION [None]
  - FALL [None]
  - CHEST PAIN [None]
  - INJECTION SITE OEDEMA [None]
  - FATIGUE [None]
  - INSOMNIA [None]
  - HYPERSENSITIVITY [None]
  - DIARRHOEA [None]
  - HYPERHIDROSIS [None]
  - DIZZINESS [None]
  - MORBID THOUGHTS [None]
  - CONSTIPATION [None]
  - DRY MOUTH [None]
  - DEPRESSION [None]
  - WEIGHT DECREASED [None]
  - NERVOUSNESS [None]
  - NERVE INJURY [None]
  - PARAESTHESIA [None]
  - SENSORY DISTURBANCE [None]
